FAERS Safety Report 12314120 (Version 5)
Quarter: 2017Q1

REPORT INFORMATION
  Report Type: Spontaneous
  Country: US (occurrence: US)
  Receive Date: 20160428
  Receipt Date: 20170118
  Transmission Date: 20170428
  Serious: No
  Sender: FDA-Public Use
  Company Number: US-ACTELION PHARMACEUTICALS US, INC.-A-US2016-135295

PATIENT
  Age: 63 Year
  Sex: Female

DRUGS (4)
  1. VENTAVIS [Suspect]
     Active Substance: ILOPROST
     Indication: PULMONARY ARTERIAL HYPERTENSION
     Dosage: 5 MCG, 6 TO 9X/DAILY
     Route: 055
     Dates: start: 20151111, end: 201606
  2. IRON [Suspect]
     Active Substance: IRON
     Indication: ANAEMIA
     Dosage: UNK
     Route: 051
  3. ADCIRCA [Concomitant]
     Active Substance: TADALAFIL
     Dosage: UNK
  4. ELIQUIS [Concomitant]
     Active Substance: APIXABAN

REACTIONS (15)
  - Tongue discomfort [Unknown]
  - Depression [Unknown]
  - Hypersomnia [Unknown]
  - Chest pain [Unknown]
  - Dyspnoea [Unknown]
  - Myalgia [Unknown]
  - Neck pain [Unknown]
  - Dysgeusia [Unknown]
  - Anxiety [Unknown]
  - Nausea [Unknown]
  - Mineral supplementation [Unknown]
  - Anaemia [Unknown]
  - Drug dose omission [Unknown]
  - Oedema peripheral [Recovering/Resolving]
  - Headache [Unknown]
